FAERS Safety Report 9247274 (Version 4)
Quarter: 2015Q1

REPORT INFORMATION
  Report Type: Spontaneous
  Country: US (occurrence: US)
  Receive Date: 20130423
  Receipt Date: 20150327
  Transmission Date: 20150721
  Serious: No
  Sender: FDA-Public Use
  Company Number: US-009507513-1304USA007695

PATIENT
  Sex: Male

DRUGS (3)
  1. FINASTERIDE. [Suspect]
     Active Substance: FINASTERIDE
     Indication: ALOPECIA
     Dosage: 1.25 MG, UNK
     Route: 048
     Dates: start: 20070404
  2. PROPECIA [Suspect]
     Active Substance: FINASTERIDE
     Indication: ALOPECIA
     Dosage: 1 MG, UNK
     Route: 048
     Dates: start: 20040921, end: 20070305
  3. PROSCAR [Suspect]
     Active Substance: FINASTERIDE
     Indication: ALOPECIA
     Dosage: 1.25 MG, UNK
     Route: 048
     Dates: start: 20041005, end: 20041217

REACTIONS (9)
  - Influenza [Unknown]
  - Abdominal discomfort [Unknown]
  - Erectile dysfunction [Unknown]
  - Cognitive disorder [Not Recovered/Not Resolved]
  - Drug administration error [Unknown]
  - Sexual dysfunction [Not Recovered/Not Resolved]
  - Wrong technique in drug usage process [Unknown]
  - Wrong technique in drug usage process [Unknown]
  - Loss of libido [Unknown]

NARRATIVE: CASE EVENT DATE: 20041005
